FAERS Safety Report 8950892 (Version 1)
Quarter: 2012Q4

REPORT INFORMATION
  Report Type: 
  Country: GB (occurrence: GB)
  Receive Date: 20121207
  Receipt Date: 20121207
  Transmission Date: 20130627
  Serious: Yes (Hospitalization)
  Sender: FDA-Public Use
  Company Number: PHFR2012GB005300

PATIENT
  Age: 73 Year
  Sex: Male
  Weight: 85.85 kg

DRUGS (9)
  1. TASIGNA [Suspect]
     Indication: CHRONIC MYELOID LEUKAEMIA
     Dosage: 400 mg, daily
     Route: 048
     Dates: start: 20120724, end: 20120820
  2. PREDNISOLONE [Concomitant]
  3. NICORANDIL [Concomitant]
  4. OMEPRAZOLE [Concomitant]
  5. SIMVASTATIN [Concomitant]
  6. ATENOLOL [Concomitant]
  7. RAMIPRIL [Concomitant]
  8. ASPIRIN [Concomitant]
  9. TRAMADOL [Concomitant]

REACTIONS (2)
  - Angina pectoris [Recovered/Resolved with Sequelae]
  - Liver function test abnormal [Recovered/Resolved]
